FAERS Safety Report 6374002-2 (Version None)
Quarter: 2009Q3

REPORT INFORMATION
  Report Type: 
  Country: None (occurrence: None)
  Receive Date: 20090924
  Receipt Date: 20090916
  Transmission Date: 20100115
  Serious: Yes (Hospitalization)
  Sender: FDA-Public Use
  Company Number: BR-BAYER-200921968LA

PATIENT
  Age: 2 Year
  Sex: Male

DRUGS (1)
  1. YASMIN [Suspect]
     Indication: ACCIDENTAL DRUG INTAKE BY CHILD
     Route: 048

REACTIONS (1)
  - NO ADVERSE EVENT [None]
